FAERS Safety Report 10015193 (Version 3)
Quarter: 2014Q2

REPORT INFORMATION
  Report Type: Spontaneous
  Country: US (occurrence: US)
  Receive Date: 20140317
  Receipt Date: 20140512
  Transmission Date: 20141212
  Serious: Yes (Hospitalization, Other)
  Sender: FDA-Public Use
  Company Number: US-BAXTER-2014BAX013045

PATIENT
  Age: 68 Year
  Sex: Male
  Weight: 103.51 kg

DRUGS (3)
  1. DIANEAL LOW CALCIUM [Suspect]
     Indication: PERITONEAL DIALYSIS
     Route: 033
  2. DIANEAL LOW CALCIUM [Suspect]
     Indication: PERITONEAL DIALYSIS
     Route: 033
  3. VANCOMYCIN [Suspect]
     Indication: PYREXIA

REACTIONS (8)
  - Myocardial infarction [Unknown]
  - Pneumonia [Unknown]
  - Peripheral swelling [Unknown]
  - Abasia [Unknown]
  - Sepsis [Recovering/Resolving]
  - Dyspnoea [Recovering/Resolving]
  - Diarrhoea [Unknown]
  - Vomiting [Unknown]
